FAERS Safety Report 18425651 (Version 1)
Quarter: 2020Q4

REPORT INFORMATION
  Report Type: Spontaneous
  Country: JP (occurrence: JP)
  Receive Date: 20201026
  Receipt Date: 20201026
  Transmission Date: 20210114
  Serious: Yes (Other)
  Sender: FDA-Public Use
  Company Number: JP-TEVA-2020-JP-1842264

PATIENT
  Sex: Female

DRUGS (11)
  1. RITUXIMAB. [Suspect]
     Active Substance: RITUXIMAB
     Indication: DIFFUSE LARGE B-CELL LYMPHOMA STAGE IV
     Dosage: RECEIVED IN R-CHOP, R-MPV, R-CHOEP, R-CHASE AND R-LEED CHEMOTHERAPY
     Route: 065
  2. CYCLOPHOSPHAMIDE. [Suspect]
     Active Substance: CYCLOPHOSPHAMIDE
     Indication: DIFFUSE LARGE B-CELL LYMPHOMA STAGE IV
     Dosage: RECEIVED IN R-CHOP, R-CHOEP, R-CHASE AND R-LEED CHEMOTHERAPY
     Route: 065
  3. VINCRISTINE [Suspect]
     Active Substance: VINCRISTINE
     Indication: DIFFUSE LARGE B-CELL LYMPHOMA STAGE IV
     Dosage: RECEIVED IN R-CHOP, R-MPV AND R-CHOEP CHEMOTHERAPY
     Route: 065
  4. ETOPOSIDE. [Suspect]
     Active Substance: ETOPOSIDE
     Indication: DIFFUSE LARGE B-CELL LYMPHOMA STAGE IV
     Dosage: RECEIVED IN R-CHOEP, R-CHASE AND R-LEED CHEMOTHERAPY
     Route: 065
  5. CYTARABINE. [Suspect]
     Active Substance: CYTARABINE
     Indication: DIFFUSE LARGE B-CELL LYMPHOMA STAGE IV
     Dosage: HIGH DOSE; RECEIVED IN R-CHASE CHEMOTHERAPY
     Route: 065
  6. PROCARBAZINE [Suspect]
     Active Substance: PROCARBAZINE
     Indication: DIFFUSE LARGE B-CELL LYMPHOMA STAGE IV
     Dosage: RECEIVED IN R-MPV CHEMOTHERAPY
     Route: 065
  7. PREDNISOLONE. [Suspect]
     Active Substance: PREDNISOLONE
     Indication: DIFFUSE LARGE B-CELL LYMPHOMA STAGE IV
     Dosage: RECEIVED IN R-CHOP, R-CHOEP AND R-CHOEP CHEMOTHERAPY
     Route: 065
  8. METHOTREXATE. [Suspect]
     Active Substance: METHOTREXATE
     Indication: DIFFUSE LARGE B-CELL LYMPHOMA STAGE IV
     Dosage: RECEIVED IN R-MPV CHEMOTHERAPY
     Route: 065
  9. DEXAMETAZONE [Suspect]
     Active Substance: DEXAMETHASONE
     Indication: DIFFUSE LARGE B-CELL LYMPHOMA STAGE IV
     Dosage: RECEIVED IN R-CHASE AND R-LEED CHEMOTHERAPY
     Route: 065
  10. MELPHALAN. [Suspect]
     Active Substance: MELPHALAN
     Indication: DIFFUSE LARGE B-CELL LYMPHOMA STAGE IV
     Dosage: RECEIVED IN R-LEED CHEMOTHERAPY
     Route: 065
  11. DOXORUBICIN [Suspect]
     Active Substance: DOXORUBICIN
     Indication: DIFFUSE LARGE B-CELL LYMPHOMA STAGE IV
     Dosage: RECEIVED IN R-CHOP, R-CHOEP AND R-LEED CHEMOTHERAPY
     Route: 065

REACTIONS (1)
  - Hepatitis B reactivation [Unknown]
